FAERS Safety Report 17170045 (Version 1)
Quarter: 2019Q4

REPORT INFORMATION
  Report Type: Spontaneous
  Country: US (occurrence: US)
  Receive Date: 20191218
  Receipt Date: 20191218
  Transmission Date: 20200122
  Serious: No
  Sender: FDA-Public Use
  Company Number: US-PFIZER INC-2019544285

PATIENT
  Age: 57 Year
  Sex: Female
  Weight: 69 kg

DRUGS (1)
  1. IBRANCE [Suspect]
     Active Substance: PALBOCICLIB
     Indication: BREAST CANCER FEMALE
     Dosage: 100 MG, CYCLIC (FREQUENCY: D 1-21 Q 28 DAYS)
     Route: 048
     Dates: start: 20191122

REACTIONS (1)
  - Agitation [Unknown]

NARRATIVE: CASE EVENT DATE: 2019
